FAERS Safety Report 4265951-X (Version None)
Quarter: 2004Q1

REPORT INFORMATION
  Report Type: 
  Country: None (occurrence: None)
  Receive Date: 20040106
  Receipt Date: 20031222
  Transmission Date: 20041129
  Serious: Yes (Other)
  Sender: FDA-Public Use
  Company Number: 2003122354

PATIENT
  Age: 65 Year
  Sex: Female

DRUGS (4)
  1. NORVASC [Suspect]
     Indication: HYPERTENSION
     Dosage: 5 MG DAILY ORAL
     Route: 048
     Dates: start: 19981002, end: 20031031
  2. PRAVASTATIN SODIUM [Suspect]
     Indication: HYPERLIPIDAEMIA
     Dosage: 10 MG DAILY ORAL
     Route: 048
     Dates: start: 19961206, end: 20031031
  3. TOCOPHERYL NICOTINATE (TOCOPHERYL NICOTINATE) [Suspect]
     Indication: HYPERLIPIDAEMIA
     Dosage: 200 MG BID ORAL
     Route: 048
     Dates: start: 19990619
  4. KETOTIFEN FUMARATE [Concomitant]

REACTIONS (3)
  - DIABETIC NEPHROPATHY [None]
  - GLOMERULONEPHRITIS PROLIFERATIVE [None]
  - RENAL FAILURE [None]
